FAERS Safety Report 12859669 (Version 1)
Quarter: 2016Q4

REPORT INFORMATION
  Report Type: Report from Study
  Country: TR (occurrence: TR)
  Receive Date: 20161018
  Receipt Date: 20161018
  Transmission Date: 20170207
  Serious: Yes (Hospitalization)
  Sender: FDA-Public Use
  Company Number: TR-B.I. PHARMACEUTICALS,INC./RIDGEFIELD-2016-BI-065991

PATIENT
  Age: 45 Year
  Sex: Male
  Weight: 108 kg

DRUGS (6)
  1. DOREL [Concomitant]
     Indication: OBESITY
     Dosage: TOTAL DOSE AND DAILY DOSE: 60
     Route: 048
  2. BESIREL [Concomitant]
     Indication: HYPERTENSION
     Dosage: TOTAL DOSE AND DAILY DOSE: 5
     Route: 048
  3. DABIGATRAN [Suspect]
     Active Substance: DABIGATRAN
     Indication: ATRIAL FIBRILLATION
     Route: 048
     Dates: start: 20160316, end: 20161001
  4. ATORVASTATIN [Concomitant]
     Active Substance: ATORVASTATIN
     Indication: CORONARY ARTERY DISEASE
     Dosage: TOTAL DOSE AND DAILY DOSE: 60
     Route: 048
  5. RELEC [Concomitant]
     Indication: CORONARY ARTERY DISEASE
     Dosage: TOTAL DOSE AND DAILY DOSE: 100
     Route: 048
  6. PLAVIX [Concomitant]
     Active Substance: CLOPIDOGREL BISULFATE
     Indication: CORONARY ARTERY ANEURYSM

REACTIONS (1)
  - Angina pectoris [Recovered/Resolved]

NARRATIVE: CASE EVENT DATE: 20161003
